FAERS Safety Report 8787993 (Version 1)
Quarter: 2012Q4

REPORT INFORMATION
  Report Type: 
  Country: US (occurrence: US)
  Receive Date: 20120914
  Receipt Date: 20120914
  Transmission Date: 20130627
  Serious: Yes (Death)
  Sender: FDA-Public Use
  Company Number: US-ROCHE-1126001

PATIENT
  Sex: Male

DRUGS (3)
  1. AVASTIN [Suspect]
     Indication: NEOPLASM
     Route: 065
     Dates: start: 20060123
  2. AVASTIN [Suspect]
     Route: 065
     Dates: start: 20060206
  3. AVASTIN [Suspect]
     Route: 065
     Dates: start: 20060220

REACTIONS (1)
  - Death [Fatal]
